FAERS Safety Report 11291067 (Version 1)
Quarter: 2015Q3

REPORT INFORMATION
  Report Type: Spontaneous
  Country: JP (occurrence: JP)
  Receive Date: 20150722
  Receipt Date: 20150722
  Transmission Date: 20151125
  Serious: Yes (Other)
  Sender: FDA-Public Use
  Company Number: JP-AMGEN-JPNSP2015073641

PATIENT

DRUGS (1)
  1. G-LASTA [Suspect]
     Active Substance: PEGFILGRASTIM
     Indication: PRODUCT USED FOR UNKNOWN INDICATION
     Dosage: UNK
     Route: 065

REACTIONS (5)
  - Febrile neutropenia [Unknown]
  - Upper gastrointestinal haemorrhage [Unknown]
  - Neutropenia [Unknown]
  - Leukopenia [Unknown]
  - Thrombocytopenia [Unknown]
